FAERS Safety Report 9469315 (Version 1)
Quarter: 2013Q3

REPORT INFORMATION
  Report Type: Spontaneous
  Country: US (occurrence: None)
  Receive Date: 20130815
  Receipt Date: 20130815
  Transmission Date: 20140515
  Serious: Yes (Hospitalization)
  Sender: FDA-Public Use
  Company Number: SYM-2013-02646

PATIENT
  Age: 59 Year
  Sex: Female

DRUGS (1)
  1. MYSOLINE [Suspect]

REACTIONS (1)
  - Product substitution issue [None]
